FAERS Safety Report 20045230 (Version 1)
Quarter: 2021Q4

REPORT INFORMATION
  Report Type: Spontaneous
  Country: DE (occurrence: DE)
  Receive Date: 20211108
  Receipt Date: 20211108
  Transmission Date: 20220303
  Serious: Yes (Hospitalization)
  Sender: FDA-Public Use
  Company Number: DE-ADRED-06831-01

PATIENT
  Age: 85 Year
  Sex: Female
  Weight: 61.6 kg

DRUGS (8)
  1. TORSEMIDE [Suspect]
     Active Substance: TORSEMIDE
     Indication: Product used for unknown indication
     Dosage: 10 MILLIGRAM, QD (10 MG, 1-0-0-0)
  2. BISOPROLOL [Concomitant]
     Active Substance: BISOPROLOL
     Dosage: 5 MILLIGRAM, BID (5 MG, 1-0-1-0)
  3. ROSUVASTATIN [Concomitant]
     Active Substance: ROSUVASTATIN
     Dosage: 20 MILLIGRAM, QD (20 MG, 0-0-1-0)
  4. CALCIUM CARBONATE\CHOLECALCIFEROL [Concomitant]
     Active Substance: CALCIUM CARBONATE\CHOLECALCIFEROL
     Dosage: 500/400 MG, 1-0-1-0
  5. PANTOPRAZOL                        /01263201/ [Concomitant]
     Dosage: 40 MILLIGRAM, QD (40 MG, 1-0-0-0)
  6. AMLODIPIN                          /00972401/ [Concomitant]
     Dosage: 5 MG, 1-0-0.5-0
  7. MAGNESIUM [Concomitant]
     Active Substance: MAGNESIUM
     Dosage: UNK (0.5-0-0.5-0)
  8. APIXABAN [Concomitant]
     Active Substance: APIXABAN
     Dosage: 2.5 MILLIGRAM, BID (2.5 MG, 1-0-1-0)

REACTIONS (9)
  - Electrocardiogram abnormal [Unknown]
  - Palpitations [Unknown]
  - General physical health deterioration [Unknown]
  - Abdominal pain lower [Unknown]
  - Abdominal pain upper [Unknown]
  - Arrhythmia [Unknown]
  - Diarrhoea [Unknown]
  - Atrial fibrillation [Unknown]
  - Hypokalaemia [Unknown]
